FAERS Safety Report 23131287 (Version 2)
Quarter: 2023Q4

REPORT INFORMATION
  Report Type: Spontaneous
  Country: US (occurrence: US)
  Receive Date: 20231031
  Receipt Date: 20231108
  Transmission Date: 20240110
  Serious: No
  Sender: FDA-Public Use
  Company Number: US-SA-SAC20231027001030

PATIENT
  Sex: Female
  Weight: 97.52 kg

DRUGS (1)
  1. DUPIXENT [Suspect]
     Active Substance: DUPILUMAB
     Indication: Dermatitis allergic
     Dosage: 600 MG, 1X
     Route: 058
     Dates: start: 20231006, end: 20231006

REACTIONS (3)
  - Peripheral swelling [Unknown]
  - Skin fissures [Unknown]
  - Pruritus [Unknown]

NARRATIVE: CASE EVENT DATE: 20231001
